FAERS Safety Report 4981490-2 (Version None)
Quarter: 2006Q2

REPORT INFORMATION
  Report Type: 
  Country: None (occurrence: None)
  Receive Date: 20060424
  Receipt Date: 20060104
  Transmission Date: 20061013
  Serious: Yes (Hospitalization)
  Sender: FDA-Public Use
  Company Number: US-MERCK-0601USA00589

PATIENT
  Age: 54 Year
  Sex: Female
  Weight: 78 kg

DRUGS (4)
  1. VIOXX [Suspect]
     Indication: ARTHRALGIA
     Route: 048
     Dates: start: 20021022, end: 20021201
  2. PREMARIN [Concomitant]
     Indication: HORMONE REPLACEMENT THERAPY
     Route: 065
     Dates: start: 19941001, end: 20021101
  3. ACETAMINOPHEN [Concomitant]
     Route: 065
     Dates: start: 20021122, end: 20021128
  4. TYLENOL (CAPLET) [Concomitant]
     Indication: PAIN
     Route: 065

REACTIONS (4)
  - ARTHRALGIA [None]
  - HYPERTENSION [None]
  - MYOCARDIAL INFARCTION [None]
  - TRANSIENT ISCHAEMIC ATTACK [None]
